FAERS Safety Report 6846915-6 (Version None)
Quarter: 2010Q3

REPORT INFORMATION
  Report Type: 
  Country: None (occurrence: None)
  Receive Date: 20100713
  Receipt Date: 20100629
  Transmission Date: 20110219
  Serious: Yes (Other)
  Sender: FDA-Public Use
  Company Number: B0664006A

PATIENT
  Age: 58 Year
  Sex: Female

DRUGS (4)
  1. MELPHALAN HYDROCHLORIDE [Suspect]
     Indication: PRODUCT USED FOR UNKNOWN INDICATION
  2. ETOPOSIDE [Suspect]
  3. CYTARABINE [Suspect]
  4. ALEMTUZUMAB (FORMULATION UNKNOWN) (ALEMTUZUMAB) [Suspect]

REACTIONS (2)
  - ESCHERICHIA INFECTION [None]
  - PNEUMONIA KLEBSIELLA [None]
